FAERS Safety Report 10649860 (Version 1)
Quarter: 2014Q4

REPORT INFORMATION
  Report Type: Spontaneous
  Country: US (occurrence: US)
  Receive Date: 20141212
  Receipt Date: 20141212
  Transmission Date: 20150529
  Serious: No
  Sender: FDA-Public Use
  Company Number: US-GILEAD-2014-0126423

PATIENT
  Age: 74 Year
  Sex: Male
  Weight: 72.56 kg

DRUGS (1)
  1. RANEXA [Suspect]
     Active Substance: RANOLAZINE
     Indication: PRODUCT USED FOR UNKNOWN INDICATION
     Dosage: 500 MG, UNK
     Route: 065
     Dates: end: 20120412

REACTIONS (3)
  - Vertigo [Recovering/Resolving]
  - Confusional state [Recovering/Resolving]
  - Nausea [Recovering/Resolving]
